FAERS Safety Report 7092637-9 (Version None)
Quarter: 2010Q4

REPORT INFORMATION
  Report Type: 
  Country: None (occurrence: None)
  Receive Date: 20101110
  Receipt Date: 20101102
  Transmission Date: 20110411
  Serious: Yes (Hospitalization)
  Sender: FDA-Public Use
  Company Number: US-US-EMD SERONO, INC.-232275J10USA

PATIENT
  Sex: Female
  Weight: 159 kg

DRUGS (4)
  1. REBIF [Suspect]
     Indication: MULTIPLE SCLEROSIS
     Route: 058
     Dates: start: 20060912, end: 20100208
  2. REBIF [Suspect]
     Route: 058
     Dates: start: 20101101
  3. MAXZIDE [Concomitant]
     Indication: HYPERTENSION
  4. PLENDIL [Concomitant]
     Indication: HYPERTENSION

REACTIONS (9)
  - ANAEMIA [None]
  - DRUG EXPOSURE DURING PREGNANCY [None]
  - INCISIONAL DRAINAGE [None]
  - INTRACRANIAL HYPOTENSION [None]
  - NERVOUS SYSTEM DISORDER [None]
  - PHARYNGITIS STREPTOCOCCAL [None]
  - POST PROCEDURAL HAEMORRHAGE [None]
  - PRE-ECLAMPSIA [None]
  - PREMATURE LABOUR [None]
